FAERS Safety Report 11841231 (Version 4)
Quarter: 2016Q1

REPORT INFORMATION
  Report Type: Report from Study
  Country: ES (occurrence: ES)
  Receive Date: 20151216
  Receipt Date: 20160208
  Transmission Date: 20160526
  Serious: Yes (Hospitalization, Other)
  Sender: FDA-Public Use
  Company Number: PHHO2015ES020537

PATIENT
  Age: 52 Year
  Sex: Male
  Weight: 78 kg

DRUGS (6)
  1. IBUPROFEN. [Concomitant]
     Active Substance: IBUPROFEN
     Indication: ARTHRALGIA
     Dosage: 600 MG, QD (54H)
     Route: 048
     Dates: start: 20150218
  2. AMN107 [Suspect]
     Active Substance: NILOTINIB
     Indication: CHRONIC MYELOID LEUKAEMIA
     Dosage: 300 MG, BID
     Route: 048
     Dates: start: 20131127
  3. ATORVASTATIN [Concomitant]
     Active Substance: ATORVASTATIN
     Indication: DYSLIPIDAEMIA
     Dosage: 20 MG, BID
     Route: 048
     Dates: start: 20150204
  4. LORAZEPAM. [Concomitant]
     Active Substance: LORAZEPAM
     Indication: ANXIETY
     Dosage: 9 MG, QD (24H)
     Route: 048
     Dates: start: 20111227
  5. MOTILIUM [Concomitant]
     Active Substance: DOMPERIDONE
     Indication: HIATUS HERNIA
     Dosage: 10 MG, 8H
     Route: 048
     Dates: start: 20151125
  6. OMEPRAZOLE. [Concomitant]
     Active Substance: OMEPRAZOLE
     Indication: HIATUS HERNIA
     Dosage: 20 MG, BID
     Route: 048
     Dates: start: 19511125

REACTIONS (2)
  - Dyslipidaemia [Unknown]
  - Acute myocardial infarction [Recovered/Resolved with Sequelae]

NARRATIVE: CASE EVENT DATE: 20151130
